FAERS Safety Report 9439644 (Version 1)
Quarter: 2013Q3

REPORT INFORMATION
  Report Type: Spontaneous
  Country: US (occurrence: US)
  Receive Date: 20130805
  Receipt Date: 20130805
  Transmission Date: 20140515
  Serious: No
  Sender: FDA-Public Use
  Company Number: US-PFIZER INC-2013224927

PATIENT
  Age: 80 Year
  Sex: Female
  Weight: 48.53 kg

DRUGS (10)
  1. NEURONTIN [Suspect]
     Indication: NEUROPATHY PERIPHERAL
     Dosage: UNK
     Dates: start: 20130606
  2. CITALOPRAM [Concomitant]
     Dosage: UNK
  3. CLONAZEPAM [Concomitant]
     Dosage: UNK
  4. DICYCLOMINE [Concomitant]
     Dosage: UNK
  5. FLUOROURACIL 5% [Concomitant]
     Dosage: UNK
  6. GABAPENTIN [Concomitant]
     Dosage: 100MG CAPSULE, ORAL 1 CAPSULE 3 TIMES AROUND THE CLOCK
     Route: 048
  7. GABAPENTIN [Concomitant]
     Dosage: UNK
  8. LEVOTHYROXINE [Concomitant]
     Dosage: UNK
  9. OMEPRAZOLE [Concomitant]
     Dosage: UNK
  10. TRAZODONE [Concomitant]
     Dosage: UNK

REACTIONS (1)
  - Drug ineffective [Unknown]
